FAERS Safety Report 19504372 (Version 2)
Quarter: 2021Q3

REPORT INFORMATION
  Report Type: Spontaneous
  Country: US (occurrence: US)
  Receive Date: 20210707
  Receipt Date: 20210723
  Transmission Date: 20211014
  Serious: Yes (Death, Hospitalization)
  Sender: FDA-Public Use
  Company Number: US-GW PHARMA-202106USGW02975

PATIENT

DRUGS (11)
  1. CLORAZEPATE [Concomitant]
     Active Substance: CLORAZEPATE DIPOTASSIUM
     Indication: PRODUCT USED FOR UNKNOWN INDICATION
     Dosage: 9.375 TID
     Route: 065
  2. FELBAMATE. [Concomitant]
     Active Substance: FELBAMATE
     Dosage: 600 MILLIGRAM, TID
  3. POLYETHYLENE GLYCOL COMPOUND [Concomitant]
     Indication: PRODUCT USED FOR UNKNOWN INDICATION
     Dosage: QD
  4. EPIDIOLEX [Suspect]
     Active Substance: CANNABIDIOL
     Indication: LENNOX-GASTAUT SYNDROME
     Dosage: 200 MILLIGRAM
     Route: 048
     Dates: start: 20190906
  5. EPIDIOLEX [Suspect]
     Active Substance: CANNABIDIOL
     Dosage: (34,3 MG/KG/QD) 600 MILLIGRAM, BID
     Route: 048
  6. EPIDIOLEX [Suspect]
     Active Substance: CANNABIDIOL
     Dosage: 200 MILLIGRAM
     Route: 048
     Dates: start: 20210121
  7. LAMOTRIGINE. [Concomitant]
     Active Substance: LAMOTRIGINE
     Indication: PRODUCT USED FOR UNKNOWN INDICATION
     Dosage: 50 MILLIGRAM, BID
  8. LAMOTRIGINE. [Concomitant]
     Active Substance: LAMOTRIGINE
     Dosage: 50 MILLIGRAM, TID
     Route: 065
  9. FELBAMATE. [Concomitant]
     Active Substance: FELBAMATE
     Indication: PRODUCT USED FOR UNKNOWN INDICATION
     Dosage: 300 MILLIGRAM, TID
  10. EPIDIOLEX [Suspect]
     Active Substance: CANNABIDIOL
     Dosage: (34,3 MG/KG/QD) 600 MILLIGRAM, BID
  11. OXCARBAZEPINE. [Concomitant]
     Active Substance: OXCARBAZEPINE
     Indication: PRODUCT USED FOR UNKNOWN INDICATION
     Dosage: 450 MILLIGRAM, BID (7.5 ML BID)

REACTIONS (22)
  - Status epilepticus [Unknown]
  - Lip dry [Unknown]
  - Hypopnoea [Unknown]
  - Crying [Unknown]
  - Tachycardia [Unknown]
  - Death [Fatal]
  - Generalised tonic-clonic seizure [Unknown]
  - Irritability [Unknown]
  - Skin lesion [Unknown]
  - Vomiting [Unknown]
  - Medical device change [Unknown]
  - Dehydration [Unknown]
  - Cyanosis [Unknown]
  - Moaning [Unknown]
  - Weight decreased [Recovering/Resolving]
  - Overdose [Unknown]
  - Urine output decreased [Recovering/Resolving]
  - Nausea [Unknown]
  - Feeding intolerance [Recovered/Resolved]
  - Seizure [Recovering/Resolving]
  - Escherichia urinary tract infection [Unknown]
  - Hypertension [Unknown]

NARRATIVE: CASE EVENT DATE: 202105
